FAERS Safety Report 9728993 (Version 2)
Quarter: 2013Q4

REPORT INFORMATION
  Report Type: Spontaneous
  Country: US (occurrence: US)
  Receive Date: 20131204
  Receipt Date: 20131204
  Transmission Date: 20140711
  Serious: Yes (Hospitalization)
  Sender: FDA-Public Use
  Company Number: US-BAYER-2013-144386

PATIENT
  Age: 19 Year
  Sex: Female

DRUGS (11)
  1. YASMIN [Suspect]
     Dosage: UNK
     Dates: start: 200711
  2. OCELLA [Suspect]
     Dosage: UNK
     Dates: start: 200711
  3. FLEXERIL [Concomitant]
     Route: 048
  4. CLARITIN [Concomitant]
     Route: 048
  5. ULTRAM [Concomitant]
     Route: 048
  6. VIRACEPT [Concomitant]
     Indication: PROPHYLAXIS AGAINST HIV INFECTION
     Dosage: 625 MG, UNK
     Route: 048
  7. COMBIVIR [Concomitant]
     Indication: PROPHYLAXIS AGAINST HIV INFECTION
     Dosage: 150/300 MG BID
     Route: 048
  8. SUSTIVA [Concomitant]
  9. PREDNISONE [Concomitant]
  10. PRILOSEC [Concomitant]
  11. VICODIN [Concomitant]

REACTIONS (9)
  - Deep vein thrombosis [None]
  - Deep vein thrombosis [None]
  - Pelvic venous thrombosis [None]
  - Pain [None]
  - Pain [None]
  - Injury [None]
  - General physical health deterioration [None]
  - Anxiety [None]
  - Emotional distress [None]
